FAERS Safety Report 8148283-9 (Version None)
Quarter: 2012Q1

REPORT INFORMATION
  Report Type: 
  Country: None (occurrence: None)
  Receive Date: 20120218
  Receipt Date: 20110516
  Transmission Date: 20120608
  Serious: No
  Sender: FDA-Public Use
  Company Number: US-ALLERGAN-1106714US

PATIENT

DRUGS (1)
  1. BOTULINUM TOXIN TYPE A [Suspect]
     Indication: IMPAIRED GASTRIC EMPTYING
     Dosage: UNK

REACTIONS (2)
  - DYSPNOEA [None]
  - CHEST PAIN [None]
